FAERS Safety Report 6472768-4 (Version None)
Quarter: 2009Q4

REPORT INFORMATION
  Report Type: 
  Country: None (occurrence: None)
  Receive Date: 20091201
  Receipt Date: 20091120
  Transmission Date: 20100525
  Serious: Yes (Hospitalization)
  Sender: FDA-Public Use
  Company Number: DE-1171528

PATIENT
  Age: 69 Year
  Sex: Male

DRUGS (1)
  1. FLUORESCEIN SODIUM (FLUORESCEIN SODIUM) 10 % INJECTION SOLUTION FOR IN [Suspect]
     Dosage: 5 ML ( 1 ML/SEC) IV ONCE INTRAVENOUS BOLUS
     Route: 040
     Dates: start: 20090917, end: 20090917

REACTIONS (6)
  - BLOOD GLUCOSE DECREASED [None]
  - COLD SWEAT [None]
  - INCONTINENCE [None]
  - NAUSEA [None]
  - SYNCOPE [None]
  - UNRESPONSIVE TO STIMULI [None]
